FAERS Safety Report 6385861-1 (Version None)
Quarter: 2009Q4

REPORT INFORMATION
  Report Type: 
  Country: None (occurrence: None)
  Receive Date: 20091002
  Receipt Date: 20090109
  Transmission Date: 20100525
  Serious: Yes (Hospitalization, Disabling)
  Sender: FDA-Public Use
  Company Number: JP-PFIZER INC-2008158864

PATIENT
  Age: 64 Year
  Sex: Female

DRUGS (12)
  1. LIPITOR [Suspect]
     Dosage: 10 MG, 1X/DAY
     Route: 048
     Dates: end: 20081005
  2. OLMETEC [Suspect]
     Dosage: 20 MG, 1X/DAY
     Route: 048
     Dates: start: 20061024, end: 20061207
  3. OLMETEC [Suspect]
     Dosage: 10 MG, 1X/DAY
     Route: 048
     Dates: start: 20061208, end: 20070704
  4. OLMETEC [Suspect]
     Dosage: 10 MG, 1X/DAY
     Route: 048
     Dates: start: 20071025
  5. COSPANON [Concomitant]
     Dosage: 40 MG, 3X/DAY
     Route: 048
     Dates: end: 20061010
  6. NOLEPTAN [Concomitant]
     Dosage: 160 MG, 3X/DAY
     Route: 048
     Dates: start: 20061011, end: 20061016
  7. CLEANAL [Concomitant]
     Dosage: 400 MG, 3X/DAY
     Route: 048
     Dates: start: 20061011, end: 20061016
  8. ALESION [Concomitant]
     Dosage: 20 MG, 1X/DAY
     Route: 048
     Dates: start: 20061011, end: 20061016
  9. AMARYL [Concomitant]
     Dosage: 1 MG, 1X/DAY
     Route: 048
  10. URSO 250 [Concomitant]
     Dosage: 100 MG, 3X/DAY
     Route: 048
  11. ASPIRIN [Concomitant]
     Dosage: 100 MG, 1X/DAY
     Route: 048
     Dates: start: 20061109
  12. ZETIA [Concomitant]
     Dosage: 10 MG, 1X/DAY
     Route: 048
     Dates: start: 20080317, end: 20081005

REACTIONS (1)
  - SYNCOPE [None]
